FAERS Safety Report 23645189 (Version 1)
Quarter: 2024Q1

REPORT INFORMATION
  Report Type: Spontaneous
  Country: US (occurrence: US)
  Receive Date: 20240318
  Receipt Date: 20240318
  Transmission Date: 20240409
  Serious: Yes (Hospitalization, Other)
  Sender: FDA-Public Use
  Company Number: US-AIMMUNE THERAPEUTICS, INC.-2024AIMT00237

PATIENT

DRUGS (1)
  1. VOWST [Suspect]
     Active Substance: DONOR HUMAN STOOL SPORES (ETHANOL TREATED)
     Indication: Clostridium difficile infection
     Dosage: UNK CAPSULES
     Route: 048
     Dates: start: 20240213

REACTIONS (5)
  - Clostridium difficile infection [Unknown]
  - Diarrhoea [Recovered/Resolved]
  - Confusional state [Unknown]
  - Muscular weakness [Unknown]
  - Clostridium test positive [Unknown]

NARRATIVE: CASE EVENT DATE: 20240201
